FAERS Safety Report 7472119-2 (Version None)
Quarter: 2011Q2

REPORT INFORMATION
  Report Type: 
  Country: None (occurrence: None)
  Receive Date: 20110511
  Receipt Date: 20110107
  Transmission Date: 20111010
  Serious: No
  Sender: FDA-Public Use
  Company Number: A0904104A

PATIENT
  Age: 80 Year
  Sex: Female

DRUGS (8)
  1. ACIPHEX [Concomitant]
  2. HERCEPTIN [Concomitant]
  3. NAVELBINE [Concomitant]
  4. XANAX [Concomitant]
  5. MELATONIN [Concomitant]
  6. ULCER MEDICATION [Concomitant]
  7. TYKERB [Suspect]
     Indication: BREAST CANCER
     Dosage: 5TAB PER DAY
     Route: 048
     Dates: start: 20070401
  8. LUCENTIS [Concomitant]

REACTIONS (1)
  - MUSCLE SPASMS [None]
